FAERS Safety Report 8019093-8 (Version None)
Quarter: 2012Q1

REPORT INFORMATION
  Report Type: 
  Country: None (occurrence: None)
  Receive Date: 20120103
  Receipt Date: 20110526
  Transmission Date: 20120608
  Serious: No
  Sender: FDA-Public Use
  Company Number: US-ABBOTT-11P-163-0729278-00

PATIENT
  Sex: Male
  Weight: 93.07 kg

DRUGS (2)
  1. TRICOR [Suspect]
     Indication: BLOOD CHOLESTEROL INCREASED
     Dosage: 48 MG
     Dates: start: 20101201, end: 20110501
  2. CARVEDILOL [Concomitant]
     Indication: HYPERTENSION
     Dates: end: 20110501

REACTIONS (1)
  - HYPOTENSION [None]
